FAERS Safety Report 8906251 (Version 1)
Quarter: 2012Q4

REPORT INFORMATION
  Report Type: Spontaneous
  Country: US (occurrence: None)
  Receive Date: 20121112
  Receipt Date: 20121112
  Transmission Date: 20130627
  Serious: Yes (Life-Threatening, Hospitalization)
  Sender: FDA-Public Use
  Company Number: None

PATIENT
  Age: 24 Year
  Sex: Female
  Weight: 68.04 kg

DRUGS (1)
  1. RISPERIDONE [Suspect]
     Indication: ANXIETY
     Route: 048
     Dates: start: 20120921, end: 20121007

REACTIONS (6)
  - Neuroleptic malignant syndrome [None]
  - Muscle spasms [None]
  - Burning sensation [None]
  - Dyskinesia [None]
  - Dyskinesia [None]
  - Loss of consciousness [None]
